FAERS Safety Report 16535364 (Version 2)
Quarter: 2019Q4

REPORT INFORMATION
  Report Type: Spontaneous
  Country: US (occurrence: US)
  Receive Date: 20190705
  Receipt Date: 20191002
  Transmission Date: 20200122
  Serious: No
  Sender: FDA-Public Use
  Company Number: US-GW PHARMA-201906USGW2170

PATIENT

DRUGS (2)
  1. EPIDIOLEX [Suspect]
     Active Substance: CANNABIDIOL
     Indication: LENNOX-GASTAUT SYNDROME
     Dosage: 9.55 MG/KG, 170 MILLIGRAM, BID
     Route: 048
     Dates: start: 20190524, end: 201906
  2. EPIDIOLEX [Suspect]
     Active Substance: CANNABIDIOL
     Dosage: 14.04 MG/KG, 250 MILLIGRAM, BID
     Route: 048
     Dates: start: 201906, end: 20190608

REACTIONS (3)
  - Pyrexia [Recovered/Resolved]
  - Dermatitis allergic [Recovered/Resolved]
  - Pruritus [Recovered/Resolved]

NARRATIVE: CASE EVENT DATE: 20190607
